FAERS Safety Report 7023390-2 (Version None)
Quarter: 2010Q3

REPORT INFORMATION
  Report Type: 
  Country: None (occurrence: None)
  Receive Date: 20100930
  Receipt Date: 20100923
  Transmission Date: 20110219
  Serious: Yes (Hospitalization)
  Sender: FDA-Public Use
  Company Number: US-WYE-H17748510

PATIENT
  Sex: Female

DRUGS (2)
  1. EFFEXOR XR [Suspect]
     Dosage: 37.5 MG, FREQUENCY UNKNOWN
     Route: 048
  2. EFFEXOR XR [Suspect]
     Dosage: WEANING OFF AND IS OPENING THE CAPSULES
     Route: 048

REACTIONS (2)
  - NONSPECIFIC REACTION [None]
  - WRONG TECHNIQUE IN DRUG USAGE PROCESS [None]
